FAERS Safety Report 9104897 (Version 1)
Quarter: 2013Q1

REPORT INFORMATION
  Report Type: Report from Study
  Country: AU (occurrence: AU)
  Receive Date: 20130220
  Receipt Date: 20130220
  Transmission Date: 20140127
  Serious: Yes (Hospitalization, Other)
  Sender: FDA-Public Use
  Company Number: AU-ROCHE-1188331

PATIENT
  Age: 90 Year
  Sex: Female

DRUGS (2)
  1. RANIBIZUMAB [Suspect]
     Indication: AGE-RELATED MACULAR DEGENERATION
     Route: 050
     Dates: start: 20111123
  2. RANIBIZUMAB [Suspect]
     Route: 050
     Dates: start: 20120604

REACTIONS (2)
  - Appendicitis perforated [Unknown]
  - Chronic hepatic failure [Unknown]
